FAERS Safety Report 4976257-5 (Version None)
Quarter: 2006Q2

REPORT INFORMATION
  Report Type: 
  Country: None (occurrence: None)
  Receive Date: 20060419
  Receipt Date: 20060410
  Transmission Date: 20061013
  Serious: Yes (Death)
  Sender: FDA-Public Use
  Company Number: US-JNJFOC-20060204997

PATIENT
  Sex: Male
  Weight: 60.78 kg

DRUGS (5)
  1. REMICADE [Suspect]
     Indication: CROHN'S DISEASE
     Route: 042
  2. REMICADE [Suspect]
     Dosage: INFLIXIMAB STARTED AT 0, 2, AND 6 WEEKS, AND THEN EVERY 8 WEEKS
     Route: 042
  3. STEROIDS [Concomitant]
  4. MESALAMINE [Concomitant]
  5. IMURAN [Concomitant]
     Indication: CROHN'S DISEASE

REACTIONS (1)
  - COMPLETED SUICIDE [None]
